FAERS Safety Report 9145612 (Version 3)
Quarter: 2013Q2

REPORT INFORMATION
  Report Type: Spontaneous
  Country: ES (occurrence: ES)
  Receive Date: 20130307
  Receipt Date: 20130405
  Transmission Date: 20140414
  Serious: Yes (Other)
  Sender: FDA-Public Use
  Company Number: ES-SP-2013-03657

PATIENT
  Age: 54 Year
  Sex: Male

DRUGS (1)
  1. BCG THERAPEUTICS [Suspect]
     Indication: BLADDER CANCER
     Dosage: NOT REPORTED
     Route: 043

REACTIONS (12)
  - Arthritis reactive [Unknown]
  - Polyarthritis [Unknown]
  - Dactylitis [Unknown]
  - Urethritis [Unknown]
  - Enthesopathy [Unknown]
  - Swelling [Unknown]
  - Inflammatory pain [Unknown]
  - Pyrexia [Unknown]
  - Purulent discharge [Unknown]
  - Diarrhoea [Unknown]
  - Arthritis [Unknown]
  - HLA marker study positive [Unknown]
